FAERS Safety Report 20091345 (Version 1)
Quarter: 2021Q4

REPORT INFORMATION
  Report Type: Spontaneous
  Country: PT (occurrence: None)
  Receive Date: 20211119
  Receipt Date: 20211119
  Transmission Date: 20220303
  Serious: Yes (Other)
  Sender: FDA-Public Use
  Company Number: PT-Merck Healthcare KGaA-9279957

PATIENT
  Age: 40 Year

DRUGS (5)
  1. CLADRIBINE [Suspect]
     Active Substance: CLADRIBINE
     Indication: Multiple sclerosis
     Dosage: YEAR ONE MONTH ONE THERAPY
     Dates: start: 20201019
  2. CLADRIBINE [Suspect]
     Active Substance: CLADRIBINE
     Dosage: YEAR ONE MONTH ONE THERAPY
     Dates: start: 202011
  3. CLADRIBINE [Suspect]
     Active Substance: CLADRIBINE
     Dosage: YEAR TWO MONTH ONE THERAPY
     Dates: start: 202110
  4. CLADRIBINE [Suspect]
     Active Substance: CLADRIBINE
     Dosage: YEAR TWO MONTH TWO THERAPY
     Dates: start: 202111
  5. COVID-19 VACCINE [Concomitant]
     Indication: COVID-19 immunisation
     Dates: start: 202105

REACTIONS (3)
  - Optic ischaemic neuropathy [Unknown]
  - Fatigue [Unknown]
  - Gait disturbance [Unknown]
